FAERS Safety Report 6137554-3 (Version None)
Quarter: 2009Q1

REPORT INFORMATION
  Report Type: 
  Country: None (occurrence: None)
  Receive Date: 20090326
  Receipt Date: 20081010
  Transmission Date: 20090719
  Serious: Yes (Death, Other)
  Sender: FDA-Public Use
  Company Number: 2009EU000995

PATIENT
  Age: 33 Year
  Sex: Female

DRUGS (7)
  1. TACROLIMUS [Suspect]
     Indication: STEM CELL TRANSPLANT
     Dates: start: 20080101
  2. MYCOPHENOLATE MOFETIL [Concomitant]
  3. METHYLPREDNISOLONE (METHYLPREDNISOLONE SODIUM SUCCINATE) [Concomitant]
  4. PENICILLIN (BENZYLPENICILLIN) [Concomitant]
  5. POSACONAZOLE [Concomitant]
  6. ACYCLOVIR (ACICLOVIR SODIUM) [Concomitant]
  7. ATOVAQUONE [Concomitant]

REACTIONS (12)
  - COUGH [None]
  - CYTOMEGALOVIRUS INFECTION [None]
  - DIARRHOEA [None]
  - DISEASE RECURRENCE [None]
  - HYPOXIA [None]
  - INFECTION IN AN IMMUNOCOMPROMISED HOST [None]
  - LUNG INFILTRATION [None]
  - NEUTROPENIA [None]
  - PERICARDIAL EFFUSION [None]
  - PYREXIA [None]
  - RHINITIS [None]
  - THROMBOCYTOPENIA [None]
